FAERS Safety Report 14262907 (Version 1)
Quarter: 2017Q4

REPORT INFORMATION
  Report Type: Spontaneous
  Country: DE (occurrence: DE)
  Receive Date: 20171208
  Receipt Date: 20171208
  Transmission Date: 20180321
  Serious: Yes (Other)
  Sender: FDA-Public Use
  Company Number: DE-ASTELLAS-2017US050664

PATIENT
  Sex: Male

DRUGS (2)
  1. TRENANTONE [Concomitant]
     Active Substance: LEUPROLIDE ACETATE
     Indication: PROSTATE CANCER
     Dosage: 11.25 MG, EVERY 3 MONTHS
     Route: 058
     Dates: start: 201206
  2. XTANDI [Suspect]
     Active Substance: ENZALUTAMIDE
     Indication: HORMONE-REFRACTORY PROSTATE CANCER
     Dosage: 160 MG (40 MG 1X4 CAPSULES), ONCE DAILY
     Route: 048
     Dates: start: 20170704, end: 20171121

REACTIONS (3)
  - Tremor [Recovered/Resolved]
  - Headache [Recovered/Resolved]
  - Restlessness [Recovered/Resolved]

NARRATIVE: CASE EVENT DATE: 20171119
